FAERS Safety Report 6827664-7 (Version None)
Quarter: 2010Q3

REPORT INFORMATION
  Report Type: 
  Country: None (occurrence: None)
  Receive Date: 20100709
  Receipt Date: 20070123
  Transmission Date: 20110219
  Serious: No
  Sender: FDA-Public Use
  Company Number: US-PFIZER INC-2007007095

PATIENT
  Sex: Female
  Weight: 54.4 kg

DRUGS (4)
  1. CHANTIX [Suspect]
     Indication: SMOKING CESSATION THERAPY
     Route: 048
     Dates: start: 20070101
  2. NEURONTIN [Concomitant]
     Route: 048
  3. CYMBALTA [Concomitant]
     Indication: DEPRESSION
     Route: 048
     Dates: start: 20060101
  4. CLONAZEPAM [Concomitant]
     Route: 048

REACTIONS (2)
  - FLATULENCE [None]
  - NAUSEA [None]
